FAERS Safety Report 21651330 (Version 2)
Quarter: 2022Q4

REPORT INFORMATION
  Report Type: Spontaneous
  Country: RO (occurrence: None)
  Receive Date: 20221128
  Receipt Date: 20221201
  Transmission Date: 20230112
  Serious: Yes (Death, Other)
  Sender: FDA-Public Use
  Company Number: RO-Merck Healthcare KGaA-9368492

PATIENT
  Age: 66 Year
  Sex: Male

DRUGS (1)
  1. BAVENCIO [Suspect]
     Active Substance: AVELUMAB
     Indication: Neuroendocrine carcinoma of the skin
     Dosage: 6 DOSES
     Dates: start: 202002, end: 20200508

REACTIONS (5)
  - Disease progression [Fatal]
  - Hydronephrosis [Unknown]
  - Pleural effusion [Unknown]
  - Asthenia [Unknown]
  - Fatigue [Unknown]

NARRATIVE: CASE EVENT DATE: 20200508
